FAERS Safety Report 6405790-4 (Version None)
Quarter: 2009Q4

REPORT INFORMATION
  Report Type: 
  Country: None (occurrence: None)
  Receive Date: 20091019
  Receipt Date: 20091014
  Transmission Date: 20100525
  Serious: Yes (Hospitalization)
  Sender: FDA-Public Use
  Company Number: US-BAYER-200911696BCC

PATIENT
  Age: 26 Year
  Sex: Female
  Weight: 47 kg

DRUGS (8)
  1. ASPIRIN [Suspect]
     Indication: RHEUMATOID ARTHRITIS
     Dosage: 10 -15 TABLETS DAILY
     Route: 048
     Dates: start: 20090201, end: 20090501
  2. REBIF [Suspect]
     Indication: MULTIPLE SCLEROSIS
     Route: 058
     Dates: start: 20090410
  3. MULTI-VITAMINS [Concomitant]
     Indication: DRUG USE FOR UNKNOWN INDICATION
  4. VITAMIN B-12 [Concomitant]
  5. DULCOLAX [Concomitant]
     Indication: CONSTIPATION
  6. PREDNISONE TAB [Concomitant]
  7. VITAMIN D [Concomitant]
  8. VITAMIN E [Concomitant]

REACTIONS (8)
  - CHILLS [None]
  - HAEMOGLOBIN DECREASED [None]
  - HAEMORRHOIDAL HAEMORRHAGE [None]
  - HEADACHE [None]
  - INFLUENZA LIKE ILLNESS [None]
  - INJECTION SITE HAEMATOMA [None]
  - PAIN [None]
  - RECTAL HAEMORRHAGE [None]
